FAERS Safety Report 7907776-7 (Version None)
Quarter: 2011Q4

REPORT INFORMATION
  Report Type: 
  Country: None (occurrence: None)
  Receive Date: 20111110
  Receipt Date: 20111101
  Transmission Date: 20120403
  Serious: Yes (Other)
  Sender: FDA-Public Use
  Company Number: CN-ASTRAZENECA-2011SE66118

PATIENT

DRUGS (3)
  1. FENTANYL [Suspect]
     Indication: ANALGESIC THERAPY
     Dosage: 0.05 MG
     Route: 042
  2. POTASSIUM CHLORIDE [Suspect]
     Route: 042
  3. PROPOFOL [Suspect]
     Indication: ANALGESIC THERAPY
     Dosage: 0.5-1 MG/KG
     Route: 042

REACTIONS (3)
  - DYSPNOEA [None]
  - VOMITING [None]
  - REGURGITATION [None]
